FAERS Safety Report 7436758-7 (Version None)
Quarter: 2011Q2

REPORT INFORMATION
  Report Type: 
  Country: None (occurrence: None)
  Receive Date: 20110426
  Receipt Date: 20110420
  Transmission Date: 20111010
  Serious: No
  Sender: FDA-Public Use
  Company Number: US-B.I. PHARMACEUTICALS,INC./RIDGEFIELD-2011-BP-10428BP

PATIENT
  Sex: Female

DRUGS (6)
  1. PRADAXA [Suspect]
     Indication: ATRIAL FIBRILLATION
     Dosage: 300 MG
     Route: 048
     Dates: start: 20110318
  2. LITHIUM [Concomitant]
     Indication: BIPOLAR I DISORDER
  3. ALLOPURINOL [Concomitant]
     Indication: GOUT
  4. LISINOPRIL [Concomitant]
     Indication: HYPERTENSION
  5. LIPITOR [Concomitant]
     Indication: BLOOD CHOLESTEROL INCREASED
  6. TENORAMIN [Concomitant]
     Indication: HYPERTENSION

REACTIONS (3)
  - DYSPEPSIA [None]
  - ADVERSE DRUG REACTION [None]
  - RECTAL HAEMORRHAGE [None]
